FAERS Safety Report 17340394 (Version 3)
Quarter: 2020Q1

REPORT INFORMATION
  Report Type: Spontaneous
  Country: CH (occurrence: CH)
  Receive Date: 20200129
  Receipt Date: 20200131
  Transmission Date: 20200409
  Serious: Yes (Death)
  Sender: FDA-Public Use
  Company Number: CH-PFIZER INC-2020036303

PATIENT
  Age: 79 Year
  Sex: Female

DRUGS (1)
  1. METHOTREXATE SODIUM. [Suspect]
     Active Substance: METHOTREXATE SODIUM
     Dosage: UNK

REACTIONS (6)
  - Liver disorder [Fatal]
  - Pancytopenia [Fatal]
  - Metabolic disorder [Fatal]
  - Acute kidney injury [Fatal]
  - Overdose [Fatal]
  - Arrhythmia [Fatal]
